FAERS Safety Report 6287131-9 (Version None)
Quarter: 2009Q3

REPORT INFORMATION
  Report Type: 
  Country: None (occurrence: None)
  Receive Date: 20090728
  Receipt Date: 20090605
  Transmission Date: 20100115
  Serious: Yes (Death, Other)
  Sender: FDA-Public Use
  Company Number: US-PURDUE-USA-2009-0039042

PATIENT
  Sex: Female

DRUGS (11)
  1. OXYCONTIN [Suspect]
     Indication: PAIN
     Dosage: 80 MG, BID
     Dates: start: 19990505, end: 20020603
  2. METHADONE HCL [Suspect]
     Indication: PAIN
     Dosage: UNK
     Dates: start: 20020619
  3. CELEXA [Suspect]
     Indication: DRUG USE FOR UNKNOWN INDICATION
     Dosage: 40 MG, SEE TEXT
  4. TRAZODONE [Concomitant]
     Dosage: 50 UNK, UNK
  5. NORVASC [Concomitant]
     Dosage: 10 UNK, UNK
  6. LEVBID [Concomitant]
     Dosage: 0.375 MG, UNK
  7. REGLAN [Concomitant]
     Dosage: 10 MG, UNK
  8. KLONOPIN [Concomitant]
     Dosage: 1 MG, UNK
  9. PREVACID [Concomitant]
     Dosage: 30 UNK, UNK
  10. LEVOXYL [Concomitant]
     Dosage: 0.15 MG, UNK
  11. DOCUSATE SODIUM [Concomitant]

REACTIONS (7)
  - COMPLETED SUICIDE [None]
  - DECREASED APPETITE [None]
  - DERMATILLOMANIA [None]
  - DRUG DEPENDENCE [None]
  - DYSPEPSIA [None]
  - HYPERSOMNIA [None]
  - MULTIPLE DRUG OVERDOSE INTENTIONAL [None]
